FAERS Safety Report 6649238-3 (Version None)
Quarter: 2010Q1

REPORT INFORMATION
  Report Type: 
  Country: None (occurrence: None)
  Receive Date: 20100324
  Receipt Date: 20100311
  Transmission Date: 20100710
  Serious: Yes (Hospitalization, Other)
  Sender: FDA-Public Use
  Company Number: US-ELI_LILLY_AND_COMPANY-US201003003214

PATIENT
  Sex: Male
  Weight: 85.261 kg

DRUGS (13)
  1. BYETTA [Suspect]
     Indication: TYPE 2 DIABETES MELLITUS
     Dosage: 5 UG, 2/D
     Route: 058
     Dates: start: 20070101, end: 20080101
  2. BYETTA [Suspect]
     Dosage: 10 UG, 2/D
     Route: 058
     Dates: start: 20080101, end: 20080101
  3. BYETTA [Suspect]
     Dosage: 10 UG, DAILY (1/D)
     Route: 058
     Dates: start: 20080101, end: 20100201
  4. METFORMIN HCL [Concomitant]
     Dosage: 1000 MG, 2/D
  5. PLAVIX [Concomitant]
     Dosage: 75 MG, DAILY (1/D)
  6. QUINAPRIL [Concomitant]
     Dosage: 40 MG, DAILY (1/D)
  7. HYDROCODONE [Concomitant]
     Dosage: UNK, DAILY (1/D)
  8. NEURONTIN [Concomitant]
     Dosage: 900 MG, 2/D
  9. CARISOPRODOL [Concomitant]
     Dosage: 350 MG, 3/D
  10. LORAZEPAM [Concomitant]
     Dosage: 6 MG, EACH EVENING
  11. LIPITOR [Concomitant]
     Dosage: 40 MG, DAILY (1/D)
  12. ASPIRIN [Concomitant]
     Dosage: 81 MG, UNKNOWN
  13. VITAMINS [Concomitant]

REACTIONS (30)
  - ABDOMINAL PAIN UPPER [None]
  - ANGIOPLASTY [None]
  - ASTHENIA [None]
  - BLOOD GLUCOSE DECREASED [None]
  - CONFUSIONAL STATE [None]
  - CONSTIPATION [None]
  - DECREASED APPETITE [None]
  - DIARRHOEA [None]
  - EPISTAXIS [None]
  - EYE IRRITATION [None]
  - FALL [None]
  - FEELING JITTERY [None]
  - GASTRIC ULCER [None]
  - HAEMATOCHEZIA [None]
  - HEADACHE [None]
  - HEART RATE INCREASED [None]
  - HYPERHIDROSIS [None]
  - INTERVERTEBRAL DISC INJURY [None]
  - MEMORY IMPAIRMENT [None]
  - NAUSEA [None]
  - NERVOUSNESS [None]
  - OCULAR HYPERAEMIA [None]
  - OFF LABEL USE [None]
  - PAIN [None]
  - RIB FRACTURE [None]
  - SPINAL FRACTURE [None]
  - STENT PLACEMENT [None]
  - VISION BLURRED [None]
  - VISUAL IMPAIRMENT [None]
  - WEIGHT DECREASED [None]
